FAERS Safety Report 6071176-8 (Version None)
Quarter: 2009Q1

REPORT INFORMATION
  Report Type: 
  Country: None (occurrence: None)
  Receive Date: 20090209
  Receipt Date: 20090204
  Transmission Date: 20090719
  Serious: Yes (Hospitalization, Other)
  Sender: FDA-Public Use
  Company Number: JP-B.I. PHARMACEUTICALS,INC./RIDGEFIELD-2009-BP-00516NB

PATIENT
  Sex: Male
  Weight: 58 kg

DRUGS (4)
  1. MICARDIS [Suspect]
     Indication: HYPERTENSION
     Dosage: 40MG
     Route: 048
     Dates: start: 20061227, end: 20081029
  2. ADALAT [Concomitant]
     Indication: HYPERTENSION
     Dosage: 40MG
     Route: 048
     Dates: start: 20000101
  3. MUCOSTA [Concomitant]
     Indication: PROPHYLAXIS
     Dosage: 300MG
     Route: 048
     Dates: start: 20000101
  4. MAGNESIUM OXIDE [Concomitant]
     Indication: CONSTIPATION
     Dosage: .9G
     Route: 048
     Dates: start: 20000101

REACTIONS (6)
  - ANOREXIA [None]
  - AORTIC ANEURYSM [None]
  - GASTRIC ULCER [None]
  - HYPERKALAEMIA [None]
  - RENAL IMPAIRMENT [None]
  - WEIGHT DECREASED [None]
